FAERS Safety Report 8066485 (Version 3)
Quarter: 2013Q3

REPORT INFORMATION
  Report Type: Spontaneous
  Country: JP (occurrence: JP)
  Receive Date: 20110803
  Receipt Date: 20130913
  Transmission Date: 20140515
  Serious: Yes (Other)
  Sender: FDA-Public Use
  Company Number: JP-ELI_LILLY_AND_COMPANY-JP201107005504

PATIENT
  Sex: Female

DRUGS (7)
  1. ADCIRCA [Suspect]
     Dosage: 40 MG/KG, QD
     Route: 048
     Dates: start: 201105, end: 201107
  2. ADCIRCA [Suspect]
     Dosage: 20 MG, QD
     Route: 048
     Dates: start: 20110817
  3. TRACLEER [Suspect]
     Dosage: 3 DF, QD
     Route: 048
     Dates: start: 20100616
  4. MEDROL [Concomitant]
  5. WARFARIN POTASSIUM [Concomitant]
     Route: 048
  6. CRESTOR [Concomitant]
     Route: 048
  7. BONALON [Concomitant]
     Route: 048

REACTIONS (1)
  - Hepatic function abnormal [Recovering/Resolving]
